FAERS Safety Report 4717666-9 (Version None)
Quarter: 2005Q3

REPORT INFORMATION
  Report Type: 
  Country: None (occurrence: None)
  Receive Date: 20050713
  Receipt Date: 20050402
  Transmission Date: 20060218
  Serious: Yes (Other)
  Sender: FDA-Public Use
  Company Number: 396369

PATIENT
  Age: 40 Year
  Sex: Male
  Weight: 56.7 kg

DRUGS (3)
  1. FUZEON [Suspect]
     Indication: HIV INFECTION
     Dates: start: 20050115
  2. ANTIVIRAL (ANTIVIRAL AGENT NOS) [Concomitant]
  3. PSYCHOTROPIC DRUG NOS (PSYCHOTROPIC DRUG NOS) [Concomitant]

REACTIONS (6)
  - CONTUSION [None]
  - INJECTION SITE INDURATION [None]
  - INJECTION SITE PAIN [None]
  - INJECTION SITE REACTION [None]
  - NAUSEA [None]
  - VOMITING [None]
